FAERS Safety Report 22037402 (Version 1)
Quarter: 2023Q1

REPORT INFORMATION
  Report Type: Spontaneous
  Country: IT (occurrence: IT)
  Receive Date: 20230226
  Receipt Date: 20230226
  Transmission Date: 20230417
  Serious: Yes (Other)
  Sender: FDA-Public Use
  Company Number: None

PATIENT
  Age: 44 Year
  Sex: Female

DRUGS (1)
  1. TECFIDERA [Suspect]
     Active Substance: DIMETHYL FUMARATE
     Indication: Relapsing-remitting multiple sclerosis
     Dosage: 1 TAB 240 MG TWICE DAILY
     Route: 050
     Dates: start: 20151016

REACTIONS (1)
  - Cervix warts [Not Recovered/Not Resolved]

NARRATIVE: CASE EVENT DATE: 20220801
